FAERS Safety Report 5291395-8 (Version None)
Quarter: 2007Q2

REPORT INFORMATION
  Report Type: 
  Country: None (occurrence: None)
  Receive Date: 20070402
  Receipt Date: 20070326
  Transmission Date: 20071010
  Serious: Yes (Other)
  Sender: FDA-Public Use
  Company Number: 2007VX000981

PATIENT
  Age: 62 Year
  Sex: Male

DRUGS (5)
  1. PERMAX [Suspect]
     Indication: PARKINSON'S DISEASE
     Dosage: 1 MG; TID
  2. LEVODOPA [Concomitant]
  3. CARBIDOPA [Concomitant]
  4. LEVODOPA W/BENSERAZIDE/ [Concomitant]
  5. CLOZAPINE [Concomitant]

REACTIONS (6)
  - ABNORMAL BEHAVIOUR [None]
  - DYSKINESIA [None]
  - INCORRECT DOSE ADMINISTERED [None]
  - MOOD SWINGS [None]
  - PAEDOPHILIA [None]
  - SELF-MEDICATION [None]
